FAERS Safety Report 6152433-3 (Version None)
Quarter: 2009Q2

REPORT INFORMATION
  Report Type: 
  Country: None (occurrence: None)
  Receive Date: 20090413
  Receipt Date: 20090312
  Transmission Date: 20091009
  Serious: No
  Sender: FDA-Public Use
  Company Number: US-BAYER-200915563NA

PATIENT
  Age: 42 Year
  Sex: Female
  Weight: 54 kg

DRUGS (5)
  1. MIRENA [Suspect]
     Indication: DRUG USE FOR UNKNOWN INDICATION
     Route: 015
     Dates: start: 20090212
  2. ESTROGENIC SUBSTANCE [Concomitant]
     Route: 062
  3. DHEA [Concomitant]
  4. TESTOSTERONE [Concomitant]
  5. IMMUNE GLOBULIN NOS [Concomitant]
     Route: 042

REACTIONS (3)
  - ABDOMINAL DISCOMFORT [None]
  - ABDOMINAL PAIN LOWER [None]
  - PARAESTHESIA [None]
